FAERS Safety Report 11939344 (Version 3)
Quarter: 2016Q1

REPORT INFORMATION
  Report Type: Spontaneous
  Country: FR (occurrence: FR)
  Receive Date: 20160122
  Receipt Date: 20160314
  Transmission Date: 20160526
  Serious: Yes (Hospitalization)
  Sender: FDA-Public Use
  Company Number: FR-JNJFOC-20160113105

PATIENT
  Age: 62 Year
  Sex: Female

DRUGS (7)
  1. XEPLION [Suspect]
     Active Substance: PALIPERIDONE PALMITATE
     Indication: PERSECUTORY DELUSION
     Route: 030
     Dates: start: 20150716, end: 20150716
  2. XEPLION [Suspect]
     Active Substance: PALIPERIDONE PALMITATE
     Indication: PERSECUTORY DELUSION
     Route: 030
     Dates: start: 20150326, end: 20150326
  3. XEPLION [Suspect]
     Active Substance: PALIPERIDONE PALMITATE
     Indication: PERSECUTORY DELUSION
     Route: 030
     Dates: start: 20150911, end: 20150911
  4. XEPLION [Suspect]
     Active Substance: PALIPERIDONE PALMITATE
     Indication: PERSECUTORY DELUSION
     Route: 030
     Dates: start: 20150813, end: 20150813
  5. XEPLION [Suspect]
     Active Substance: PALIPERIDONE PALMITATE
     Indication: PERSECUTORY DELUSION
     Route: 030
     Dates: start: 20151009, end: 20151009
  6. XEPLION [Suspect]
     Active Substance: PALIPERIDONE PALMITATE
     Indication: PERSECUTORY DELUSION
     Route: 030
     Dates: start: 20150521, end: 20150521
  7. XEPLION [Suspect]
     Active Substance: PALIPERIDONE PALMITATE
     Indication: PERSECUTORY DELUSION
     Route: 030
     Dates: start: 20150424, end: 20150424

REACTIONS (8)
  - Pain [Recovered/Resolved]
  - Hypersensitivity [Unknown]
  - Alopecia [Unknown]
  - Erectile dysfunction [Unknown]
  - Joint swelling [Unknown]
  - Gait disturbance [Unknown]
  - Scleroderma [Unknown]
  - Dermatomyositis [Recovered/Resolved]

NARRATIVE: CASE EVENT DATE: 20151009
